FAERS Safety Report 17638637 (Version 1)
Quarter: 2020Q2

REPORT INFORMATION
  Report Type: Spontaneous
  Country: US (occurrence: US)
  Receive Date: 20200407
  Receipt Date: 20200407
  Transmission Date: 20200713
  Serious: Yes (Other)
  Sender: FDA-Public Use
  Company Number: None

PATIENT
  Sex: Female
  Weight: 77.4 kg

DRUGS (2)
  1. BYSTOLIC [Concomitant]
     Active Substance: NEBIVOLOL HYDROCHLORIDE
  2. CIPROFLOXACIN. [Suspect]
     Active Substance: CIPROFLOXACIN
     Indication: URINARY TRACT INFECTION

REACTIONS (21)
  - Balance disorder [None]
  - Myalgia [None]
  - Oesophageal spasm [None]
  - Headache [None]
  - Plantar fasciitis [None]
  - Tendonitis [None]
  - Vision blurred [None]
  - Neurogenic bowel [None]
  - Vocal cord dysfunction [None]
  - Restlessness [None]
  - Diplopia [None]
  - Tremor [None]
  - Hot flush [None]
  - Peripheral swelling [None]
  - Neuropathy peripheral [None]
  - Heart rate irregular [None]
  - Neurogenic bladder [None]
  - Dysphagia [None]
  - Paraesthesia [None]
  - Muscular weakness [None]
  - Arthralgia [None]
